FAERS Safety Report 20787103 (Version 1)
Quarter: 2022Q2

REPORT INFORMATION
  Report Type: Spontaneous
  Country: CA (occurrence: CA)
  Receive Date: 20220505
  Receipt Date: 20220505
  Transmission Date: 20220720
  Serious: Yes (Hospitalization, Other)
  Sender: FDA-Public Use
  Company Number: CA-TEVA-2022-CA-2032306

PATIENT
  Age: 23 Year
  Sex: Male

DRUGS (4)
  1. MORPHINE SULFATE [Suspect]
     Active Substance: MORPHINE SULFATE
     Indication: Product used for unknown indication
     Route: 048
  2. OXYCODONE HYDROCHLORIDE [Suspect]
     Active Substance: OXYCODONE HYDROCHLORIDE
     Indication: Product used for unknown indication
     Route: 065
  3. OXYCONTIN [Suspect]
     Active Substance: OXYCODONE HYDROCHLORIDE
     Indication: Product used for unknown indication
     Route: 048
  4. DOMPERIDONE [Concomitant]
     Active Substance: DOMPERIDONE

REACTIONS (7)
  - Anxiety [Unknown]
  - Depression [Unknown]
  - Drug dependence [Unknown]
  - Illness [Unknown]
  - Insomnia [Unknown]
  - Suicide attempt [Unknown]
  - Overdose [Unknown]
